FAERS Safety Report 12846307 (Version 2)
Quarter: 2016Q4

REPORT INFORMATION
  Report Type: Spontaneous
  Country: IT (occurrence: IT)
  Receive Date: 20161014
  Receipt Date: 20161020
  Transmission Date: 20170207
  Serious: Yes (Hospitalization)
  Sender: FDA-Public Use
  Company Number: IT-ASTRAZENECA-2016SF07001

PATIENT
  Age: 70 Year
  Sex: Female

DRUGS (7)
  1. SERTRALINE HYDROCHLORIDE. [Interacting]
     Active Substance: SERTRALINE HYDROCHLORIDE
     Indication: DEPRESSION
     Route: 065
  2. LEVOTHYROXINE. [Concomitant]
     Active Substance: LEVOTHYROXINE
     Indication: HYPOTHYROIDISM
     Route: 065
  3. ROSUVASTATIN. [Suspect]
     Active Substance: ROSUVASTATIN
     Indication: HYPERCHOLESTEROLAEMIA
     Route: 048
     Dates: end: 201310
  4. ARMOLIPID PLUS [Interacting]
     Active Substance: DIETARY SUPPLEMENT
     Dosage: 1 DF/DAY: POLICOSANOL (10 MG/TABLET), RED YEAST RICE (200 MG/TABLET), BERBERINE (588 MG/TABLET), ...
     Route: 048
     Dates: start: 201310
  5. PRAMIPEXOLE. [Concomitant]
     Active Substance: PRAMIPEXOLE
     Indication: PARKINSON^S DISEASE
     Dosage: 0.63 MG, DAILY (0.18 MG, 1 AND 1/2 TABLETS IN THE MORNING AND TWO TABLETS AT BEDTIME
     Route: 065
  6. PERINDOPRIL ERBUMINE/INDAPAMIDE [Concomitant]
     Indication: HYPERTENSION
     Dosage: 2.5/0.625 DAILY
     Route: 065
  7. ROSUVASTATIN. [Interacting]
     Active Substance: ROSUVASTATIN
     Indication: HYPERCHOLESTEROLAEMIA
     Route: 048

REACTIONS (2)
  - Drug interaction [Recovered/Resolved]
  - Rhabdomyolysis [Recovered/Resolved]

NARRATIVE: CASE EVENT DATE: 20131016
